FAERS Safety Report 16002493 (Version 1)
Quarter: 2019Q1

REPORT INFORMATION
  Report Type: Spontaneous
  Country: US (occurrence: US)
  Receive Date: 20190225
  Receipt Date: 20190225
  Transmission Date: 20190418
  Serious: Yes (Other)
  Sender: FDA-Public Use
  Company Number: US-SA-2019SA050179

PATIENT
  Age: 59 Year
  Sex: Male

DRUGS (3)
  1. VORICONAZOLE. [Suspect]
     Active Substance: VORICONAZOLE
     Indication: ANTIFUNGAL PROPHYLAXIS
     Dosage: 400 MG, QD
  2. ALEMTUZUMAB [Suspect]
     Active Substance: ALEMTUZUMAB
     Indication: PROPHYLAXIS AGAINST GRAFT VERSUS HOST DISEASE
  3. TACROLIMUS. [Concomitant]
     Active Substance: TACROLIMUS
     Indication: PROPHYLAXIS AGAINST GRAFT VERSUS HOST DISEASE

REACTIONS (7)
  - Rash [Recovering/Resolving]
  - Chronic graft versus host disease in liver [Recovering/Resolving]
  - Off label use [Unknown]
  - Chronic graft versus host disease in skin [Recovering/Resolving]
  - Graft versus host disease in eye [Recovering/Resolving]
  - Photosensitivity reaction [Recovering/Resolving]
  - Condition aggravated [Recovering/Resolving]
